FAERS Safety Report 5903224-7 (Version None)
Quarter: 2008Q3

REPORT INFORMATION
  Report Type: 
  Country: None (occurrence: None)
  Receive Date: 20080930
  Receipt Date: 20080916
  Transmission Date: 20090109
  Serious: Yes (Hospitalization)
  Sender: FDA-Public Use
  Company Number: PHHY2008FR10840

PATIENT
  Sex: Male
  Weight: 93 kg

DRUGS (31)
  1. GLEEVEC [Suspect]
     Dosage: 600 MG/DAY
     Route: 048
     Dates: end: 20080518
  2. GLEEVEC [Suspect]
     Dosage: UNK
     Dates: start: 20080818
  3. METHOTREXATE (NGX) [Suspect]
     Dosage: UNK
     Route: 042
     Dates: start: 20080225, end: 20080225
  4. METHOTREXATE (NGX) [Suspect]
     Dosage: UNK
     Route: 042
     Dates: start: 20080326, end: 20080326
  5. METHOTREXATE (NGX) [Suspect]
     Dosage: 8600 MG/DAY
     Dates: start: 20080509, end: 20080509
  6. METHOTREXATE (NGX) [Suspect]
     Dosage: (LOW DOSE)
     Dates: start: 20080818
  7. VINCRISTINE (NGX) [Suspect]
     Dosage: UNK
     Route: 042
     Dates: start: 20080225, end: 20080225
  8. VINCRISTINE (NGX) [Suspect]
     Dosage: 2 MG/DAY
     Route: 042
     Dates: start: 20080509, end: 20080509
  9. VINCRISTINE (NGX) [Suspect]
     Dosage: 2 MG/DAY
     Route: 042
     Dates: start: 20080514, end: 20080514
  10. ENDOXAN [Suspect]
     Dosage: UNK
     Route: 042
     Dates: start: 20080225, end: 20080225
  11. ENDOXAN [Suspect]
     Dosage: 5 X 344 MG
     Route: 042
     Dates: start: 20080510, end: 20080512
  12. ARACYTINE [Suspect]
     Dosage: UNK
     Route: 042
     Dates: start: 20080225, end: 20080225
  13. ARACYTINE [Suspect]
     Dosage: UNK
     Route: 042
     Dates: start: 20080418, end: 20080418
  14. BACTRIM [Suspect]
     Dosage: UNK
     Route: 048
     Dates: start: 20080515, end: 20080518
  15. BACTRIM [Suspect]
     Dosage: UNK
     Dates: start: 20080818
  16. DEXAMETHASONE [Concomitant]
     Dosage: UNK
     Route: 042
     Dates: start: 20080225, end: 20080225
  17. DEXAMETHASONE [Concomitant]
     Dosage: UNK
     Route: 042
     Dates: start: 20080326, end: 20080326
  18. DEXAMETHASONE [Concomitant]
     Dosage: UNK
     Route: 042
     Dates: start: 20080418, end: 20080418
  19. DEXAMETHASONE [Concomitant]
     Dosage: UNK
     Route: 042
     Dates: start: 20080509, end: 20080509
  20. ASPARAGINASE [Concomitant]
     Dosage: UNK
     Dates: start: 20080418, end: 20080418
  21. ASPARAGINASE [Concomitant]
     Dosage: 43000 IU/DAY
     Dates: start: 20080513, end: 20080514
  22. VINDESINE [Concomitant]
     Dosage: UNK
     Route: 042
     Dates: start: 20080326, end: 20080326
  23. IFOSFAMIDE [Concomitant]
     Dosage: UNK
     Route: 042
     Dates: start: 20080326, end: 20080326
  24. SOLU-MEDROL [Concomitant]
     Dosage: UNK
     Dates: start: 20080509, end: 20080509
  25. MESNA [Concomitant]
     Dosage: 120 MG, QID
     Dates: start: 20080510, end: 20080512
  26. MOPRAL [Concomitant]
     Dosage: UNK
     Dates: start: 20080515
  27. SPASFON [Concomitant]
     Dosage: UNK
     Dates: start: 20080515
  28. XYLOCAINE [Concomitant]
     Dosage: UNK
     Route: 050
     Dates: start: 20080515
  29. SKENAN [Concomitant]
     Dosage: UNK
     Dates: start: 20080516
  30. MORPHINE [Concomitant]
     Dosage: UNK
     Dates: start: 20080516
  31. PURINETHOL [Concomitant]
     Dosage: UNK
     Dates: start: 20080818

REACTIONS (27)
  - ALANINE AMINOTRANSFERASE INCREASED [None]
  - ASPARTATE AMINOTRANSFERASE INCREASED [None]
  - BLOOD ALKALINE PHOSPHATASE INCREASED [None]
  - BLOOD BILIRUBIN INCREASED [None]
  - BLOOD CREATININE INCREASED [None]
  - BONE MARROW FAILURE [None]
  - CHEILITIS [None]
  - CHOLESTASIS [None]
  - CYTOLYTIC HEPATITIS [None]
  - DERMATITIS BULLOUS [None]
  - ENTERAL NUTRITION [None]
  - FEBRILE BONE MARROW APLASIA [None]
  - GASTRIC MUCOSAL LESION [None]
  - GASTROINTESTINAL DISORDER [None]
  - HYPERNATRAEMIA [None]
  - HYPERTENSION [None]
  - MECHANICAL VENTILATION [None]
  - MUCOSAL INFLAMMATION [None]
  - NIKOLSKY'S SIGN [None]
  - OEDEMA [None]
  - PAIN OF SKIN [None]
  - PARALYSIS [None]
  - RENAL FAILURE [None]
  - RESPIRATORY DISORDER [None]
  - STEVENS-JOHNSON SYNDROME [None]
  - THROMBOCYTOPENIA [None]
  - TOXIC SKIN ERUPTION [None]
